FAERS Safety Report 11727546 (Version 1)
Quarter: 2015Q4

REPORT INFORMATION
  Report Type: Spontaneous
  Country: US (occurrence: None)
  Receive Date: 20151112
  Receipt Date: 20151112
  Transmission Date: 20160304
  Serious: Yes (Life-Threatening, Hospitalization, Other)
  Sender: FDA-Public Use
  Company Number: US-MDT-ADR-2015-02136

PATIENT
  Age: 52 Year
  Sex: Male

DRUGS (1)
  1. BACLOFEN INTRATHECAL [Suspect]
     Active Substance: BACLOFEN
     Indication: MUSCLE SPASTICITY

REACTIONS (10)
  - Vomiting [None]
  - Pyrexia [None]
  - Urine output decreased [None]
  - Condition aggravated [None]
  - Cholecystitis infective [None]
  - Pneumonia aspiration [None]
  - Malaise [None]
  - Faecal incontinence [None]
  - Gastrointestinal disorder [None]
  - Gastric dilatation [None]
